FAERS Safety Report 6699839-1 (Version None)
Quarter: 2010Q2

REPORT INFORMATION
  Report Type: 
  Country: None (occurrence: None)
  Receive Date: 20100427
  Receipt Date: 20100427
  Transmission Date: 20101027
  Serious: Yes (Hospitalization)
  Sender: FDA-Public Use
  Company Number: None

PATIENT
  Sex: Male
  Weight: 103.2 kg

DRUGS (5)
  1. VELCADE [Suspect]
     Indication: LYMPHOMA
     Dosage: 2.8 MG DAY 1,8,15,22 IV
     Route: 042
     Dates: start: 20100408
  2. VELCADE [Suspect]
     Indication: LYMPHOMA
     Dosage: 2.8 MG DAY 1,8,15,22 IV
     Route: 042
     Dates: start: 20100410
  3. CYTOXAN [Suspect]
     Dosage: 225 MG/M2 D1-4 PO
     Route: 048
     Dates: start: 20100415
  4. DECADRON [Suspect]
     Dosage: D1-7, 8-9, 15 40MG PO
     Route: 048
  5. RITUXAN [Suspect]
     Dosage: DAY 1 803 MG IV
     Route: 042

REACTIONS (1)
  - INTERSTITIAL LUNG DISEASE [None]
